FAERS Safety Report 7583058-0 (Version None)
Quarter: 2011Q2

REPORT INFORMATION
  Report Type: 
  Country: None (occurrence: None)
  Receive Date: 20110630
  Receipt Date: 20110621
  Transmission Date: 20111010
  Serious: Yes (Hospitalization, Other)
  Sender: FDA-Public Use
  Company Number: ZA-ASTRAZENECA-2011SE37393

PATIENT
  Age: 34 Year
  Sex: Female

DRUGS (4)
  1. SEROQUEL XR [Suspect]
     Indication: DEPRESSION
     Route: 048
     Dates: start: 20101117, end: 20110615
  2. ZOLOFT [Concomitant]
     Indication: BIPOLAR DISORDER
     Route: 048
     Dates: start: 20090610
  3. ZOLOFT [Concomitant]
     Route: 048
     Dates: start: 20100818
  4. ZOLOFT [Concomitant]
     Route: 048
     Dates: start: 20101117

REACTIONS (4)
  - PREMATURE SEPARATION OF PLACENTA [None]
  - WEIGHT INCREASED [None]
  - DRUG EXPOSURE DURING PREGNANCY [None]
  - PREMATURE BABY [None]
